FAERS Safety Report 25074866 (Version 1)
Quarter: 2025Q1

REPORT INFORMATION
  Report Type: Spontaneous
  Country: TR (occurrence: TR)
  Receive Date: 20250313
  Receipt Date: 20250313
  Transmission Date: 20250409
  Serious: Yes (Hospitalization)
  Sender: ASCENDIS PHARMA
  Company Number: TR-ASCENDIS PHARMA-2025TR008304

PATIENT

DRUGS (1)
  1. YORVIPATH [Suspect]
     Active Substance: PALOPEGTERIPARATIDE
     Indication: Product used for unknown indication
     Route: 058

REACTIONS (2)
  - Bronchospasm [Unknown]
  - Asthma [Unknown]
